FAERS Safety Report 8477686-8 (Version None)
Quarter: 2012Q2

REPORT INFORMATION
  Report Type: 
  Country: None (occurrence: None)
  Receive Date: 20120621
  Receipt Date: 20120614
  Transmission Date: 20120825
  Serious: Yes (Death)
  Sender: FDA-Public Use
  Company Number: DSA_54915_2012

PATIENT
  Sex: Female

DRUGS (2)
  1. XENAZINE [Suspect]
     Indication: PRODUCT USED FOR UNKNOWN INDICATION
     Dosage: (25 MG BID, DOSE REDUCED ORAL) ; (25 MG QID ORAL) ; (25 MG BID ORAL)
     Route: 048
     Dates: start: 20111101
  2. XENAZINE [Suspect]
     Indication: PRODUCT USED FOR UNKNOWN INDICATION
     Dosage: (25 MG BID, DOSE REDUCED ORAL) ; (25 MG QID ORAL) ; (25 MG BID ORAL)
     Route: 048
     Dates: start: 20110401, end: 20111101

REACTIONS (2)
  - ABASIA [None]
  - ABNORMAL BEHAVIOUR [None]
